FAERS Safety Report 16474006 (Version 1)
Quarter: 2019Q2

REPORT INFORMATION
  Report Type: Spontaneous
  Country: US (occurrence: US)
  Receive Date: 20190625
  Receipt Date: 20190625
  Transmission Date: 20190711
  Serious: No
  Sender: FDA-Public Use
  Company Number: US-JNJFOC-20190618213

PATIENT
  Age: 5 Decade
  Sex: Female

DRUGS (1)
  1. USTEKINUMAB SOLUTION FOR INJECTION [Suspect]
     Active Substance: USTEKINUMAB
     Indication: PSORIASIS
     Route: 058

REACTIONS (2)
  - Cluster headache [Not Recovered/Not Resolved]
  - Tremor [Not Recovered/Not Resolved]
